FAERS Safety Report 25203131 (Version 1)
Quarter: 2025Q2

REPORT INFORMATION
  Report Type: Spontaneous
  Country: PT (occurrence: PT)
  Receive Date: 20250416
  Receipt Date: 20250416
  Transmission Date: 20250716
  Serious: No
  Sender: ALEXION PHARMACEUTICALS
  Company Number: PT-AstraZeneca-CH-00844399AP

PATIENT

DRUGS (3)
  1. SYMBICORT [Suspect]
     Active Substance: BUDESONIDE\FORMOTEROL FUMARATE DIHYDRATE
     Indication: Chronic obstructive pulmonary disease
     Dosage: 160 MICROGRAM, BID
     Route: 065
  2. ACETYLCYSTEINE [Concomitant]
     Active Substance: ACETYLCYSTEINE
     Route: 065
  3. BILASTINE [Concomitant]
     Active Substance: BILASTINE
     Route: 065

REACTIONS (2)
  - Respiratory tract infection [Unknown]
  - Off label use [Unknown]
